FAERS Safety Report 6902091-2 (Version None)
Quarter: 2010Q3

REPORT INFORMATION
  Report Type: 
  Country: None (occurrence: None)
  Receive Date: 20100803
  Receipt Date: 20080423
  Transmission Date: 20110219
  Serious: Yes (Other)
  Sender: FDA-Public Use
  Company Number: US-PFIZER INC-2008035998

PATIENT
  Sex: Female
  Weight: 72.6 kg

DRUGS (4)
  1. LYRICA [Suspect]
     Indication: NEURALGIA
     Route: 048
     Dates: start: 20071101
  2. LYRICA [Suspect]
     Dates: start: 20080101
  3. FENTANYL CITRATE [Suspect]
     Indication: FIBROMYALGIA
     Dosage: 25 UG/HR,FREQUENCY: 1 IN 48 HOUR
     Dates: start: 20080101
  4. FENTANYL CITRATE [Suspect]
     Dosage: 1 EVERY 3 DAYS25 UG/HR
     Route: 062
     Dates: start: 20071001

REACTIONS (2)
  - DRUG INEFFECTIVE [None]
  - HALLUCINATION, VISUAL [None]
